FAERS Safety Report 15961880 (Version 1)
Quarter: 2019Q1

REPORT INFORMATION
  Report Type: Report from Study
  Country: HN (occurrence: HN)
  Receive Date: 20190214
  Receipt Date: 20190214
  Transmission Date: 20190417
  Serious: Yes (Other)
  Sender: FDA-Public Use
  Company Number: PHHY2019HN021173

PATIENT
  Sex: Female
  Weight: 162 kg

DRUGS (1)
  1. EXFORGE [Suspect]
     Active Substance: AMLODIPINE BESYLATE\VALSARTAN
     Indication: HYPERTENSION
     Dosage: 1 DF (AMLODIPINE 5 MG, VALSARTAN 160 MG), QD
     Route: 065

REACTIONS (5)
  - General physical health deterioration [Unknown]
  - Hordeolum [Unknown]
  - Eye burns [Unknown]
  - Eye pain [Unknown]
  - Ocular discomfort [Unknown]
